FAERS Safety Report 18414464 (Version 1)
Quarter: 2020Q4

REPORT INFORMATION
  Report Type: Other
  Country: CN (occurrence: CN)
  Receive Date: 20201022
  Receipt Date: 20201022
  Transmission Date: 20210114
  Serious: Yes (Hospitalization)
  Sender: FDA-Public Use
  Company Number: CN-APOTEX-2020AP020422

PATIENT
  Age: 24 Year
  Sex: Female

DRUGS (2)
  1. SEROXAT CR MODIFIED RELEASE TABLET [Suspect]
     Active Substance: PAROXETINE HYDROCHLORIDE
     Indication: DEPRESSION
     Dosage: 25 MG, QD
     Route: 048
     Dates: start: 20200919, end: 20200928
  2. PAROXETINE HYDROCHLORIDE. [Suspect]
     Active Substance: PAROXETINE HYDROCHLORIDE
     Indication: DEPRESSION
     Dosage: UNK
     Route: 048
     Dates: start: 20190928, end: 20201010

REACTIONS (4)
  - Hepatic function abnormal [Recovering/Resolving]
  - Palpitations [Recovering/Resolving]
  - Tachycardia [Recovering/Resolving]
  - Condition aggravated [Unknown]

NARRATIVE: CASE EVENT DATE: 20200930
